FAERS Safety Report 6781309-3 (Version None)
Quarter: 2010Q2

REPORT INFORMATION
  Report Type: 
  Country: None (occurrence: None)
  Receive Date: 20100621
  Receipt Date: 20100615
  Transmission Date: 20101027
  Serious: Yes (Life-Threatening, Hospitalization)
  Sender: FDA-Public Use
  Company Number: PHHY2010ES38767

PATIENT
  Age: 85 Year
  Sex: Female

DRUGS (3)
  1. SINTROM [Suspect]
     Indication: ATRIAL FIBRILLATION
     Route: 048
  2. VOLTAREN [Suspect]
     Indication: ARTHRALGIA
     Dosage: UNK
  3. KARVEA [Concomitant]
     Indication: HYPERTENSION
     Dosage: 75 MG, OD
     Route: 048

REACTIONS (1)
  - GASTROINTESTINAL HAEMORRHAGE [None]
